FAERS Safety Report 9057972 (Version 1)
Quarter: 2013Q1

REPORT INFORMATION
  Report Type: Spontaneous
  Country: US (occurrence: None)
  Receive Date: 20130204
  Receipt Date: 20130204
  Transmission Date: 20140127
  Serious: Yes (Other)
  Sender: FDA-Public Use
  Company Number: None

PATIENT
  Age: 46 Year
  Sex: Female
  Weight: 74.84 kg

DRUGS (1)
  1. SAPHRIS [Suspect]
     Indication: BIPOLAR I DISORDER
     Route: 048
     Dates: start: 20120801, end: 20121227

REACTIONS (11)
  - Drug hypersensitivity [None]
  - Retching [None]
  - Throat irritation [None]
  - Heart rate increased [None]
  - Tremor [None]
  - Drug withdrawal syndrome [None]
  - Insomnia [None]
  - Dry mouth [None]
  - Nervousness [None]
  - Nausea [None]
  - Decreased appetite [None]
